FAERS Safety Report 12004666 (Version 1)
Quarter: 2016Q1

REPORT INFORMATION
  Report Type: Report from Study
  Country: US (occurrence: US)
  Receive Date: 20160204
  Receipt Date: 20160204
  Transmission Date: 20160526
  Serious: No
  Sender: FDA-Public Use
  Company Number: US-ABBVIE-15K-163-1433868-00

PATIENT
  Age: 58 Year
  Sex: Female

DRUGS (2)
  1. METHOTREXATE [Concomitant]
     Active Substance: METHOTREXATE
     Indication: PRODUCT USED FOR UNKNOWN INDICATION
  2. HUMIRA [Suspect]
     Active Substance: ADALIMUMAB
     Indication: RHEUMATOID ARTHRITIS
     Route: 065
     Dates: start: 20150513

REACTIONS (8)
  - Blister [Not Recovered/Not Resolved]
  - Musculoskeletal pain [Recovering/Resolving]
  - Feeling hot [Unknown]
  - Asthenia [Unknown]
  - Bronchitis [Unknown]
  - Impaired healing [Unknown]
  - Arthropod bite [Not Recovered/Not Resolved]
  - Splinter [Not Recovered/Not Resolved]

NARRATIVE: CASE EVENT DATE: 2015
